FAERS Safety Report 8611580-4 (Version None)
Quarter: 2012Q3

REPORT INFORMATION
  Report Type: 
  Country: None (occurrence: None)
  Receive Date: 20120822
  Receipt Date: 20120817
  Transmission Date: 20120928
  Serious: Yes (Other)
  Sender: FDA-Public Use
  Company Number: PHFR2011GB006818

PATIENT
  Sex: Male
  Weight: 84 kg

DRUGS (18)
  1. DIFFLAM [Concomitant]
     Dosage: UNK UKN, UNK SPRAY
  2. CLOBAZAM [Concomitant]
     Dosage: 10 MG, PRN
  3. VITAMIN D [Concomitant]
     Dosage: 1 DF, BID
  4. MELATONIN [Concomitant]
     Dosage: 6 MG, PRN
  5. DOMPERIDONE [Concomitant]
     Dosage: 30 MG, DAILY
  6. LANSOPRAZOLE [Concomitant]
     Dosage: 30 MG, DAILY
  7. CORSODYL [Concomitant]
  8. TEGRETOL [Concomitant]
     Dosage: 1000 MG, DAILY
  9. PREGABALIN [Concomitant]
     Dosage: 150 MG, DAILY
  10. RAMIPRIL [Concomitant]
     Dosage: 5 MG, DAILY
  11. VITAMIN B NOS [Concomitant]
     Dosage: 1 DF, BID
  12. EVEROLIMUS [Suspect]
     Dosage: UNK UKN, UNK
  13. VALPROATE SODIUM [Concomitant]
     Dosage: 1800 MG, DAILY
  14. ADCAL-D3 [Concomitant]
     Dosage: 1500 MG/10 MICROGRAMS
  15. SOLVAZINC [Concomitant]
     Dosage: 125 MG, UNK
  16. ACETAMINOPHEN [Concomitant]
     Dosage: 20 ML, PRN
  17. ANTEPSIN [Concomitant]
     Dosage: 10 MG, UNK
  18. ZINC SULFATE [Concomitant]
     Dosage: 1 DF, DAILY

REACTIONS (7)
  - EXPRESSIVE LANGUAGE DISORDER [None]
  - CONVULSION [None]
  - OSTEOPOROSIS [None]
  - DIARRHOEA [None]
  - SPEECH DISORDER [None]
  - DRUG LEVEL BELOW THERAPEUTIC [None]
  - VOMITING [None]
